FAERS Safety Report 14419843 (Version 8)
Quarter: 2018Q2

REPORT INFORMATION
  Report Type: Report from Study
  Country: US (occurrence: US)
  Receive Date: 20180122
  Receipt Date: 20180605
  Transmission Date: 20180711
  Serious: Yes (Hospitalization, Other)
  Sender: FDA-Public Use
  Company Number: US-PFIZER INC-2017545160

PATIENT
  Age: 46 Year
  Sex: Female

DRUGS (2)
  1. IBRANCE [Suspect]
     Active Substance: PALBOCICLIB
     Indication: BREAST CANCER FEMALE
     Dosage: 125 MG, CYCLIC (DAILY 3 WEEKS ON, 1 WEEK OFF)
     Route: 048
     Dates: start: 201711, end: 201712
  2. IBRANCE [Suspect]
     Active Substance: PALBOCICLIB
     Dosage: 75 MG, CYCLIC(DAILY 3 WEEKS ON, 1 WEEK OFF/ DAILY FOR 21 DAYS)
     Route: 048
     Dates: start: 20171219

REACTIONS (21)
  - Condition aggravated [Not Recovered/Not Resolved]
  - Hot flush [Unknown]
  - Respiratory distress [Not Recovered/Not Resolved]
  - Pneumonia fungal [Unknown]
  - Neuropathy peripheral [Not Recovered/Not Resolved]
  - Diarrhoea [Unknown]
  - Mood altered [Unknown]
  - Fatigue [Not Recovered/Not Resolved]
  - Aspergillus infection [Recovered/Resolved]
  - Intentional product misuse [Unknown]
  - Sneezing [Unknown]
  - Feeling cold [Unknown]
  - Weight increased [Unknown]
  - Rash [Recovering/Resolving]
  - White blood cell count decreased [Recovering/Resolving]
  - Rhinorrhoea [Unknown]
  - Insomnia [Unknown]
  - Pneumonia [Unknown]
  - Sinus disorder [Recovering/Resolving]
  - Spinal pain [Not Recovered/Not Resolved]
  - Increased appetite [Unknown]

NARRATIVE: CASE EVENT DATE: 2017
